FAERS Safety Report 23276163 (Version 8)
Quarter: 2025Q2

REPORT INFORMATION
  Report Type: Spontaneous
  Country: US (occurrence: US)
  Receive Date: 20231208
  Receipt Date: 20250603
  Transmission Date: 20250716
  Serious: Yes (Hospitalization, Other)
  Sender: BRISTOL-MYERS SQUIBB COMPANY
  Company Number: US-BRISTOL-MYERS SQUIBB COMPANY-2023-177855

PATIENT
  Age: 61 Year
  Sex: Female

DRUGS (2)
  1. ORENCIA [Suspect]
     Active Substance: ABATACEPT
     Indication: Product used for unknown indication
     Route: 058
  2. ASPIRIN [Suspect]
     Active Substance: ASPIRIN
     Indication: Product used for unknown indication

REACTIONS (9)
  - Oesophageal spasm [Unknown]
  - Diverticulitis [Unknown]
  - Transient ischaemic attack [Unknown]
  - Illness [Unknown]
  - Injection site haemorrhage [Unknown]
  - Fatigue [Unknown]
  - Brain fog [Unknown]
  - General physical health deterioration [Unknown]
  - Poor venous access [Unknown]

NARRATIVE: CASE EVENT DATE: 20240414
